FAERS Safety Report 11814796 (Version 1)
Quarter: 2015Q4

REPORT INFORMATION
  Report Type: Spontaneous
  Country: AU (occurrence: AU)
  Receive Date: 20151209
  Receipt Date: 20151209
  Transmission Date: 20160305
  Serious: Yes (Other)
  Sender: FDA-Public Use
  Company Number: AU-009507513-1508AUS006564

PATIENT
  Sex: Male

DRUGS (1)
  1. KEYTRUDA [Suspect]
     Active Substance: PEMBROLIZUMAB
     Indication: MALIGNANT MELANOMA
     Dosage: UNK
     Dates: start: 201508

REACTIONS (4)
  - Malignant neoplasm progression [Unknown]
  - Arthralgia [Unknown]
  - Pruritus [Unknown]
  - Pain [Unknown]

NARRATIVE: CASE EVENT DATE: 2015
